FAERS Safety Report 16020395 (Version 2)
Quarter: 2019Q2

REPORT INFORMATION
  Report Type: Spontaneous
  Country: FR (occurrence: FR)
  Receive Date: 20190301
  Receipt Date: 20190621
  Transmission Date: 20190711
  Serious: Yes (Death, Other)
  Sender: FDA-Public Use
  Company Number: FR-MYLANLABS-2019M1018890

PATIENT
  Age: 68 Year
  Sex: Female

DRUGS (14)
  1. VINDESINE [Suspect]
     Active Substance: VINDESINE
     Indication: BREAST CANCER
     Dosage: 12 MILLIGRAM/SQ. METER
     Route: 065
  2. DOXORUBICIN [Suspect]
     Active Substance: DOXORUBICIN
     Indication: BREAST CANCER
     Dosage: 200 MILLIGRAM/SQ. METER
     Route: 065
  3. MITOMYCIN. [Suspect]
     Active Substance: MITOMYCIN
     Indication: BREAST CANCER
     Dosage: 45 MILLIGRAM/SQ. METER
     Route: 065
  4. MITOMYCIN. [Suspect]
     Active Substance: MITOMYCIN
     Indication: BENIGN BREAST NEOPLASM
  5. VINDESINE [Suspect]
     Active Substance: VINDESINE
     Indication: BENIGN BREAST NEOPLASM
  6. FLUOROURACIL. [Suspect]
     Active Substance: FLUOROURACIL
     Indication: BREAST CANCER
     Dosage: 1500 MILLIGRAM/SQ. METER
     Route: 065
  7. FLUOROURACIL. [Suspect]
     Active Substance: FLUOROURACIL
     Indication: BENIGN BREAST NEOPLASM
  8. ETOPOSIDE. [Suspect]
     Active Substance: ETOPOSIDE
     Indication: BREAST CANCER
     Dosage: 450 MILLIGRAM/SQ. METER
     Route: 065
  9. CYCLOPHOSPHAMIDE. [Suspect]
     Active Substance: CYCLOPHOSPHAMIDE
     Indication: BENIGN BREAST NEOPLASM
  10. VINCRISTINE SULFATE. [Suspect]
     Active Substance: VINCRISTINE SULFATE
     Indication: BREAST CANCER
     Dosage: 6 MILLIGRAM/SQ. METER
  11. VINCRISTINE SULFATE. [Suspect]
     Active Substance: VINCRISTINE SULFATE
     Indication: BENIGN BREAST NEOPLASM
  12. ETOPOSIDE. [Suspect]
     Active Substance: ETOPOSIDE
     Indication: BENIGN BREAST NEOPLASM
  13. DOXORUBICIN [Suspect]
     Active Substance: DOXORUBICIN
     Indication: BENIGN BREAST NEOPLASM
  14. CYCLOPHOSPHAMIDE. [Suspect]
     Active Substance: CYCLOPHOSPHAMIDE
     Indication: BREAST CANCER
     Dosage: 1500 MILLIGRAM/SQ. METER
     Route: 065

REACTIONS (2)
  - Acute promyelocytic leukaemia [Fatal]
  - Second primary malignancy [Fatal]
